FAERS Safety Report 21633511 (Version 1)
Quarter: 2022Q4

REPORT INFORMATION
  Report Type: Spontaneous
  Country: US (occurrence: US)
  Receive Date: 20221123
  Receipt Date: 20221123
  Transmission Date: 20230112
  Serious: Yes (Hospitalization, Other)
  Sender: FDA-Public Use
  Company Number: US-SA-SAC20221122001118

PATIENT
  Age: 78 Year
  Sex: Female

DRUGS (1)
  1. DUPIXENT [Suspect]
     Active Substance: DUPILUMAB
     Indication: Dermatitis atopic
     Dosage: 300 MG, QOW
     Route: 058
     Dates: start: 20200608

REACTIONS (10)
  - Hypoaesthesia [Unknown]
  - Condition aggravated [Unknown]
  - Dysarthria [Unknown]
  - Condition aggravated [Unknown]
  - Blepharospasm [Unknown]
  - Condition aggravated [Unknown]
  - Eyelid ptosis [Unknown]
  - Condition aggravated [Unknown]
  - Transient ischaemic attack [Unknown]
  - Cerebrovascular accident [Unknown]

NARRATIVE: CASE EVENT DATE: 20221102
